FAERS Safety Report 16651772 (Version 1)
Quarter: 2019Q3

REPORT INFORMATION
  Report Type: Spontaneous
  Country: US (occurrence: US)
  Receive Date: 20190730
  Receipt Date: 20190730
  Transmission Date: 20191004
  Serious: No
  Sender: FDA-Public Use
  Company Number: None

PATIENT
  Age: 78 Year
  Sex: Male
  Weight: 76.5 kg

DRUGS (6)
  1. METFORMIN HCL - GENERIC FOR GLUCOPHAGE [Suspect]
     Active Substance: METFORMIN HYDROCHLORIDE
     Indication: PROSTATIC SPECIFIC ANTIGEN INCREASED
     Dosage: ?          QUANTITY:180 TABLET(S);?
     Route: 048
  2. LEVOTHYROXIN [Concomitant]
     Active Substance: LEVOTHYROXINE
  3. MULTIVITAMIN [Concomitant]
     Active Substance: VITAMINS
  4. NICOTINAMIDE RIBOSIDE. [Concomitant]
     Active Substance: NICOTINAMIDE RIBOSIDE
  5. ATORVASTATIN [Concomitant]
     Active Substance: ATORVASTATIN
  6. VITAMIN D [Concomitant]
     Active Substance: VITAMIN D NOS

REACTIONS (3)
  - Depression [None]
  - Asthenia [None]
  - Product odour abnormal [None]

NARRATIVE: CASE EVENT DATE: 20190624
